FAERS Safety Report 11582188 (Version 1)
Quarter: 2015Q4

REPORT INFORMATION
  Report Type: Spontaneous
  Country: US (occurrence: US)
  Receive Date: 20151001
  Receipt Date: 20151001
  Transmission Date: 20160304
  Serious: No
  Sender: FDA-Public Use
  Company Number: US-ROCHE-641538

PATIENT
  Age: 66 Year
  Sex: Male

DRUGS (2)
  1. PEGASYS [Suspect]
     Active Substance: PEGINTERFERON ALFA-2A
     Indication: HEPATITIS C
     Dosage: DOSEFORM: PRE-FILLED SYRINGE
     Route: 058
     Dates: start: 20090506, end: 200908
  2. RIBAVIRIN. [Suspect]
     Active Substance: RIBAVIRIN
     Indication: HEPATITIS C
     Route: 048
     Dates: start: 20090506, end: 200908

REACTIONS (5)
  - Dizziness [Unknown]
  - Dehydration [Unknown]
  - Nausea [Unknown]
  - Haematochezia [Unknown]
  - Dizziness [Unknown]

NARRATIVE: CASE EVENT DATE: 20090526
